FAERS Safety Report 16642546 (Version 1)
Quarter: 2019Q3

REPORT INFORMATION
  Report Type: Spontaneous
  Country: US (occurrence: US)
  Receive Date: 20190614
  Receipt Date: 20190614
  Transmission Date: 20191004
  Serious: Yes (Hospitalization)
  Sender: FDA-Public Use
  Company Number: None

PATIENT
  Age: 63 Year
  Sex: Male
  Weight: 91.3 kg

DRUGS (14)
  1. PLAVIX [Concomitant]
     Active Substance: CLOPIDOGREL BISULFATE
  2. ZOFRAN [Concomitant]
     Active Substance: ONDANSETRON HYDROCHLORIDE
  3. CITALOPRAM [Concomitant]
     Active Substance: CITALOPRAM HYDROBROMIDE
  4. VELPHORO [Suspect]
     Active Substance: FERRIC OXYHYDROXIDE
  5. NOVOLIN [Concomitant]
     Active Substance: INSULIN HUMAN
  6. AMITIZA [Suspect]
     Active Substance: LUBIPROSTONE
  7. CLONAZEPAM. [Concomitant]
     Active Substance: CLONAZEPAM
  8. MIDODRINE [Concomitant]
     Active Substance: MIDODRINE
  9. MIRALAX [Concomitant]
     Active Substance: POLYETHYLENE GLYCOL 3350
  10. SINGULAIR [Concomitant]
     Active Substance: MONTELUKAST SODIUM
  11. BENADRYL [Concomitant]
     Active Substance: DIPHENHYDRAMINE HYDROCHLORIDE
  12. ASPIRIN. [Concomitant]
     Active Substance: ASPIRIN
  13. ATORVASTATIN [Concomitant]
     Active Substance: ATORVASTATIN
  14. RENA-VITE [Concomitant]
     Active Substance: ASCORBIC ACID\BIOTIN\CALCIUM PANTOTHENATE\CYANOCOBALAMIN\FOLIC ACID\NIACINAMIDE\PYRIDOXINE HYDROCHLORIDE\RIBOFLAVIN\THIAMINE MONONITRATE

REACTIONS (2)
  - Haemoglobin increased [None]
  - Blood iron increased [None]

NARRATIVE: CASE EVENT DATE: 20150901
